FAERS Safety Report 7433241-X (Version None)
Quarter: 2011Q2

REPORT INFORMATION
  Report Type: 
  Country: None (occurrence: None)
  Receive Date: 20110415
  Receipt Date: 20110404
  Transmission Date: 20111010
  Serious: Yes (Hospitalization)
  Sender: FDA-Public Use
  Company Number: 883618

PATIENT
  Age: 50 Year
  Sex: Female

DRUGS (1)
  1. OXALIPLATIN [Suspect]
     Indication: COLON CANCER
     Dosage: 120 MG MILLIGRAM(S) ( UNKNOWN )  INTRAVENOUS (NOT OTHERWISE SPECIFIED)
     Route: 042
     Dates: start: 20110328, end: 20110328

REACTIONS (3)
  - EPIGLOTTIC OEDEMA [None]
  - NEUROPATHY PERIPHERAL [None]
  - URTICARIA [None]
